FAERS Safety Report 4891798-7 (Version None)
Quarter: 2006Q1

REPORT INFORMATION
  Report Type: 
  Country: None (occurrence: None)
  Receive Date: 20060123
  Receipt Date: 20060109
  Transmission Date: 20060701
  Serious: Yes (Life-Threatening, Hospitalization)
  Sender: FDA-Public Use
  Company Number: 2006P1000013

PATIENT
  Age: 24 Year
  Sex: Female

DRUGS (2)
  1. NICARDIPINE HCL [Suspect]
     Indication: THREATENED LABOUR
     Dosage: 1.5 MG; QH; IV
     Route: 042
     Dates: start: 20051012
  2. BETAMETHASONE [Suspect]

REACTIONS (12)
  - ABDOMINAL HAEMATOMA [None]
  - AORTIC DILATATION [None]
  - ATRIAL FIBRILLATION [None]
  - BICUSPID AORTIC VALVE [None]
  - BLOOD CREATINE PHOSPHOKINASE INCREASED [None]
  - C-REACTIVE PROTEIN INCREASED [None]
  - DRUG EXPOSURE DURING PREGNANCY [None]
  - INTERSTITIAL LUNG DISEASE [None]
  - MITRAL VALVE INCOMPETENCE [None]
  - PO2 INCREASED [None]
  - PULMONARY OEDEMA [None]
  - TRICUSPID VALVE INCOMPETENCE [None]
